FAERS Safety Report 5219295-X (Version None)
Quarter: 2007Q1

REPORT INFORMATION
  Report Type: 
  Country: None (occurrence: None)
  Receive Date: 20070125
  Receipt Date: 20070118
  Transmission Date: 20070707
  Serious: Yes (Hospitalization, Other)
  Sender: FDA-Public Use
  Company Number: US-AVENTIS-200710452US

PATIENT
  Sex: Male
  Weight: 108.87 kg

DRUGS (9)
  1. LANTUS [Suspect]
     Indication: DIABETES MELLITUS NON-INSULIN-DEPENDENT
     Dates: start: 20060901
  2. APIDRA [Suspect]
     Indication: DIABETES MELLITUS NON-INSULIN-DEPENDENT
     Dosage: DOSE: SLIDING SCALE 10-15 UNITS
     Dates: start: 20060901
  3. OPTICLIK (INSULIN INJECTION PEN) [Suspect]
     Dates: start: 20060901
  4. OPTICLIK (INSULIN INJECTION PEN) [Suspect]
     Dates: start: 20060901
  5. CLOPIDOGREL [Concomitant]
  6. ZOCOR [Concomitant]
     Dosage: DOSE: UNK
  7. METOPROLOL SUCCINATE [Concomitant]
  8. LISINOPRIL [Concomitant]
     Dosage: DOSE: UNK
  9. ASPIRIN [Concomitant]

REACTIONS (5)
  - CHEST PAIN [None]
  - CORONARY ARTERY OCCLUSION [None]
  - MYOCARDIAL INFARCTION [None]
  - THERAPEUTIC RESPONSE UNEXPECTED [None]
  - WEIGHT DECREASED [None]
